FAERS Safety Report 15639472 (Version 1)
Quarter: 2018Q4

REPORT INFORMATION
  Report Type: Spontaneous
  Country: CA (occurrence: CA)
  Receive Date: 20181120
  Receipt Date: 20181120
  Transmission Date: 20190205
  Serious: Yes (Hospitalization)
  Sender: FDA-Public Use
  Company Number: CA-EPIC PHARMA LLC-2018EPC00469

PATIENT
  Age: 8 Year
  Sex: Female

DRUGS (4)
  1. GUANFACINE. [Suspect]
     Active Substance: GUANFACINE
     Dosage: 3 MG
     Route: 065
  2. GUANFACINE. [Suspect]
     Active Substance: GUANFACINE
     Indication: ATTENTION DEFICIT/HYPERACTIVITY DISORDER
     Dosage: UNK
     Route: 065
  3. GUANFACINE. [Suspect]
     Active Substance: GUANFACINE
     Dosage: 3 MG, 1X/DAY
     Route: 065
  4. GUANFACINE. [Suspect]
     Active Substance: GUANFACINE
     Dosage: 2 MG

REACTIONS (5)
  - Respiratory acidosis [Recovered/Resolved]
  - Hypotension [Recovered/Resolved]
  - Atrioventricular dissociation [Recovered/Resolved]
  - Somnolence [Recovered/Resolved]
  - Bradycardia [Recovered/Resolved]
